FAERS Safety Report 4484922-1 (Version None)
Quarter: 2004Q3

REPORT INFORMATION
  Report Type: 
  Country: None (occurrence: None)
  Receive Date: 20040921
  Receipt Date: 20030807
  Transmission Date: 20050211
  Serious: Yes (Hospitalization)
  Sender: FDA-Public Use
  Company Number: 163-20785-03080357

PATIENT
  Age: 80 Year
  Sex: Male
  Weight: 68.0396 kg

DRUGS (6)
  1. THALOMID [Suspect]
     Indication: MYELODYSPLASTIC SYNDROME
     Dosage: ORAL
     Route: 048
     Dates: start: 20030330, end: 20030608
  2. GLEEVEC [Suspect]
     Indication: MYELODYSPLASTIC SYNDROME
     Dates: start: 20030330, end: 20030608
  3. LASIX [Concomitant]
  4. ATENOLOL [Concomitant]
  5. LANOXIN [Concomitant]
  6. SYNTHROID [Concomitant]

REACTIONS (2)
  - ASTHENIA [None]
  - PYREXIA [None]
